FAERS Safety Report 20772734 (Version 1)
Quarter: 2022Q2

REPORT INFORMATION
  Report Type: Report from Study
  Country: IT (occurrence: IT)
  Receive Date: 20220502
  Receipt Date: 20220502
  Transmission Date: 20220721
  Serious: Yes (Other)
  Sender: FDA-Public Use
  Company Number: IT-UCBSA-2022024383

PATIENT
  Age: 38 Year
  Sex: Male

DRUGS (5)
  1. VIMPAT [Suspect]
     Active Substance: LACOSAMIDE
     Indication: Product used for unknown indication
     Dosage: UNK
  2. VIMPAT [Suspect]
     Active Substance: LACOSAMIDE
     Dosage: 200MG AM, 50MG NOON AND 200MG PM 3X/DAY (TID)
  3. BRIVARACETAM [Suspect]
     Active Substance: BRIVARACETAM
     Indication: Product used for unknown indication
     Dosage: UNK
  4. CANNABIDIOL [Concomitant]
     Active Substance: CANNABIDIOL
     Indication: Product used for unknown indication
     Dosage: UNK
     Dates: start: 202111
  5. INOVELON [Concomitant]
     Active Substance: RUFINAMIDE
     Indication: Cognitive disorder

REACTIONS (5)
  - Seizure [Unknown]
  - Drug resistance [Unknown]
  - Drug ineffective [Unknown]
  - Overdose [Unknown]
  - Product use issue [Unknown]
